FAERS Safety Report 7089403-7 (Version None)
Quarter: 2010Q4

REPORT INFORMATION
  Report Type: 
  Country: None (occurrence: None)
  Receive Date: 20101108
  Receipt Date: 20101028
  Transmission Date: 20110411
  Serious: Yes (Other)
  Sender: FDA-Public Use
  Company Number: DE-JNJFOC-20101007773

PATIENT
  Age: 19 Year
  Sex: Female
  Weight: 70 kg

DRUGS (5)
  1. IMODIUM [Suspect]
     Route: 048
     Dates: start: 20101028, end: 20101028
  2. IMODIUM [Suspect]
     Indication: ILL-DEFINED DISORDER
     Route: 048
     Dates: start: 20101028, end: 20101028
  3. PARACET [Suspect]
     Indication: ILL-DEFINED DISORDER
     Route: 048
     Dates: start: 20101028, end: 20101028
  4. CETIRIZINE HCL [Suspect]
     Indication: ILL-DEFINED DISORDER
     Route: 048
     Dates: start: 20101028, end: 20101028
  5. COTRIM [Suspect]
     Indication: ILL-DEFINED DISORDER
     Route: 048
     Dates: start: 20101028, end: 20101028

REACTIONS (2)
  - MULTIPLE DRUG OVERDOSE INTENTIONAL [None]
  - SUICIDE ATTEMPT [None]
